FAERS Safety Report 18408639 (Version 3)
Quarter: 2020Q4

REPORT INFORMATION
  Report Type: Report from Study
  Country: None (occurrence: MX)
  Receive Date: 20201021
  Receipt Date: 20201124
  Transmission Date: 20210114
  Serious: Yes (Hospitalization, Disabling)
  Sender: FDA-Public Use
  Company Number: MX-ABBVIE-20K-107-3616085-00

PATIENT
  Age: 69 Year
  Sex: Male
  Weight: 75 kg

DRUGS (1)
  1. HUMIRA [Suspect]
     Active Substance: ADALIMUMAB
     Indication: PSORIATIC ARTHROPATHY
     Route: 058
     Dates: start: 20161023

REACTIONS (9)
  - Diabetes mellitus [Unknown]
  - Wound secretion [Unknown]
  - Hypoacusis [Recovering/Resolving]
  - Asthenia [Unknown]
  - Deafness bilateral [Recovering/Resolving]
  - Bacterial infection [Unknown]
  - Cardiac operation [Unknown]
  - Weight decreased [Unknown]
  - Pharyngitis [Recovering/Resolving]

NARRATIVE: CASE EVENT DATE: 2018
